APPROVED DRUG PRODUCT: INDOMETHACIN
Active Ingredient: INDOMETHACIN
Strength: 50MG
Dosage Form/Route: CAPSULE;ORAL
Application: A070624 | Product #001
Applicant: RISING PHARMA HOLDINGS INC
Approved: Sep 4, 1985 | RLD: No | RS: No | Type: DISCN